FAERS Safety Report 9570446 (Version 1)
Quarter: 2013Q3

REPORT INFORMATION
  Report Type: Spontaneous
  Country: US (occurrence: None)
  Receive Date: 20130926
  Receipt Date: 20130926
  Transmission Date: 20140515
  Serious: Yes (Other)
  Sender: FDA-Public Use
  Company Number: 54973 AE 1505

PATIENT
  Age: 7 Month
  Sex: Male

DRUGS (1)
  1. HYLAND^S BABY TEETHING TABLETS [Suspect]
     Indication: TEETHING
     Dosage: UNKNOWN DOSAGE

REACTIONS (1)
  - Convulsion [None]
